FAERS Safety Report 5248007-9 (Version None)
Quarter: 2007Q1

REPORT INFORMATION
  Report Type: 
  Country: None (occurrence: None)
  Receive Date: 20070226
  Receipt Date: 20070226
  Transmission Date: 20070707
  Serious: Yes (Life-Threatening)
  Sender: FDA-Public Use
  Company Number: None

PATIENT
  Age: 19 Year
  Sex: Female
  Weight: 63.5036 kg

DRUGS (1)
  1. CABERGOLINE [Suspect]
     Indication: PITUITARY TUMOUR
     Dosage: 0.5 MG BIWEEKLY PO
     Route: 048
     Dates: start: 20050101, end: 20070225

REACTIONS (1)
  - NO ADVERSE DRUG EFFECT [None]
